FAERS Safety Report 9313140 (Version 1)
Quarter: 2013Q2

REPORT INFORMATION
  Report Type: Spontaneous
  Country: US (occurrence: US)
  Receive Date: 20130528
  Receipt Date: 20130528
  Transmission Date: 20140414
  Serious: No
  Sender: FDA-Public Use
  Company Number: US-ABBOTT-13P-163-1072204-00

PATIENT
  Age: 57 Year
  Sex: Male
  Weight: 79.45 kg

DRUGS (6)
  1. ANDROGEL [Suspect]
     Indication: BLOOD TESTOSTERONE DECREASED
     Dosage: 2 PUMPS
     Route: 061
     Dates: start: 20130301
  2. ASACOL [Concomitant]
     Indication: CROHN^S DISEASE
  3. COLESTID [Concomitant]
     Indication: BLOOD CHOLESTEROL INCREASED
  4. LANSOPRAZOLE [Concomitant]
     Indication: GASTROOESOPHAGEAL REFLUX DISEASE
  5. LOVAZA [Concomitant]
     Indication: PRODUCT USED FOR UNKNOWN INDICATION
  6. LISINOPRIL [Concomitant]
     Indication: HYPERTENSION

REACTIONS (4)
  - Blood testosterone decreased [Not Recovered/Not Resolved]
  - Nasopharyngitis [Recovered/Resolved]
  - Incorrect storage of drug [Unknown]
  - Drug ineffective [Unknown]
